FAERS Safety Report 4509523-8 (Version None)
Quarter: 2004Q4

REPORT INFORMATION
  Report Type: 
  Country: None (occurrence: None)
  Receive Date: 20041119
  Receipt Date: 20041110
  Transmission Date: 20050328
  Serious: No
  Sender: FDA-Public Use
  Company Number: 2004UW22495

PATIENT
  Age: 46 Year
  Sex: Male

DRUGS (2)
  1. ELAVIL [Suspect]
     Dosage: 200 MG DAILY PO
     Route: 048
  2. ELAVIL [Suspect]
     Dosage: 250 MG PO
     Route: 048

REACTIONS (17)
  - ABNORMAL BEHAVIOUR [None]
  - AGGRESSION [None]
  - ANGER [None]
  - DISTURBANCE IN ATTENTION [None]
  - DIZZINESS [None]
  - DRUG WITHDRAWAL SYNDROME [None]
  - HYPOMANIA [None]
  - INSOMNIA [None]
  - MANIA [None]
  - NERVOUS SYSTEM DISORDER [None]
  - NERVOUSNESS [None]
  - PARAESTHESIA [None]
  - PRURITUS [None]
  - RASH [None]
  - STRESS SYMPTOMS [None]
  - TINNITUS [None]
  - TREMOR [None]
